FAERS Safety Report 16845538 (Version 1)
Quarter: 2019Q3

REPORT INFORMATION
  Report Type: Spontaneous
  Country: GB (occurrence: GB)
  Receive Date: 20190924
  Receipt Date: 20190924
  Transmission Date: 20191005
  Serious: Yes (Hospitalization)
  Sender: FDA-Public Use
  Company Number: GB-JNJFOC-20180812543

PATIENT
  Age: 35 Year
  Sex: Male

DRUGS (2)
  1. METHOTREXATE. [Concomitant]
     Active Substance: METHOTREXATE
     Indication: UNDIFFERENTIATED CONNECTIVE TISSUE DISEASE
     Route: 065
  2. INFLIXIMAB, RECOMBINANT [Suspect]
     Active Substance: INFLIXIMAB
     Indication: UNDIFFERENTIATED CONNECTIVE TISSUE DISEASE
     Route: 042
     Dates: start: 20161204, end: 20171107

REACTIONS (5)
  - Respiratory failure [Unknown]
  - Pneumothorax [Unknown]
  - Product use in unapproved indication [Unknown]
  - Off label use [Unknown]
  - Pneumonia [Recovered/Resolved]

NARRATIVE: CASE EVENT DATE: 20161204
